FAERS Safety Report 25014207 (Version 1)
Quarter: 2025Q1

REPORT INFORMATION
  Report Type: Spontaneous
  Country: FR (occurrence: FR)
  Receive Date: 20250226
  Receipt Date: 20250226
  Transmission Date: 20250409
  Serious: Yes (Disabling)
  Sender: AMGEN
  Company Number: FR-AMGEN-FRASP2024258119

PATIENT
  Age: 63 Year
  Sex: Male
  Weight: 78 kg

DRUGS (29)
  1. BLINATUMOMAB [Suspect]
     Active Substance: BLINATUMOMAB
     Indication: B-cell type acute leukaemia
     Route: 040
     Dates: start: 20240715, end: 20240812
  2. BLINATUMOMAB [Suspect]
     Active Substance: BLINATUMOMAB
     Route: 040
     Dates: start: 20240909
  3. CYTARABINE [Suspect]
     Active Substance: CYTARABINE
     Indication: B-cell type acute leukaemia
     Route: 029
     Dates: start: 20240614, end: 20240614
  4. CYTARABINE [Suspect]
     Active Substance: CYTARABINE
     Route: 029
     Dates: start: 20240618, end: 20240618
  5. CYTARABINE [Suspect]
     Active Substance: CYTARABINE
     Route: 029
     Dates: start: 20240623, end: 20240623
  6. CYTARABINE [Suspect]
     Active Substance: CYTARABINE
     Route: 029
     Dates: start: 20240628, end: 20240628
  7. CYTARABINE [Suspect]
     Active Substance: CYTARABINE
     Route: 029
     Dates: start: 20240716, end: 20240716
  8. CYTARABINE [Suspect]
     Active Substance: CYTARABINE
     Route: 029
     Dates: start: 20240801, end: 20240801
  9. CYTARABINE [Suspect]
     Active Substance: CYTARABINE
     Route: 029
     Dates: start: 20240814, end: 20240814
  10. CYTARABINE [Suspect]
     Active Substance: CYTARABINE
     Route: 029
     Dates: start: 20240909, end: 20240909
  11. CYTARABINE [Suspect]
     Active Substance: CYTARABINE
     Route: 029
     Dates: start: 20241007, end: 20241007
  12. METHOTREXATE [Suspect]
     Active Substance: METHOTREXATE
     Indication: B-cell type acute leukaemia
     Route: 029
     Dates: start: 20240614, end: 20240614
  13. METHOTREXATE [Suspect]
     Active Substance: METHOTREXATE
     Route: 029
     Dates: start: 20240618, end: 20240618
  14. METHOTREXATE [Suspect]
     Active Substance: METHOTREXATE
     Route: 029
     Dates: start: 20240623, end: 20240623
  15. METHOTREXATE [Suspect]
     Active Substance: METHOTREXATE
     Route: 029
     Dates: start: 20240628, end: 20240628
  16. METHOTREXATE [Suspect]
     Active Substance: METHOTREXATE
     Route: 029
     Dates: start: 20240716, end: 20240716
  17. METHOTREXATE [Suspect]
     Active Substance: METHOTREXATE
     Route: 029
     Dates: start: 20240801, end: 20240801
  18. METHOTREXATE [Suspect]
     Active Substance: METHOTREXATE
     Route: 029
     Dates: start: 20240814, end: 20240814
  19. METHOTREXATE [Suspect]
     Active Substance: METHOTREXATE
     Route: 029
     Dates: start: 20240909, end: 20240909
  20. METHOTREXATE [Suspect]
     Active Substance: METHOTREXATE
     Route: 029
     Dates: start: 20241007, end: 20241007
  21. HYDROCORTISONE [Suspect]
     Active Substance: HYDROCORTISONE
     Indication: B-cell type acute leukaemia
     Route: 029
     Dates: start: 20240614, end: 20240614
  22. HYDROCORTISONE [Suspect]
     Active Substance: HYDROCORTISONE
     Route: 029
     Dates: start: 20240618, end: 20240618
  23. HYDROCORTISONE [Suspect]
     Active Substance: HYDROCORTISONE
     Route: 029
     Dates: start: 20240623, end: 20240623
  24. HYDROCORTISONE [Suspect]
     Active Substance: HYDROCORTISONE
     Route: 029
     Dates: start: 20240628, end: 20240628
  25. HYDROCORTISONE [Suspect]
     Active Substance: HYDROCORTISONE
     Route: 029
     Dates: start: 20240716, end: 20240716
  26. HYDROCORTISONE [Suspect]
     Active Substance: HYDROCORTISONE
     Route: 029
     Dates: start: 20240801, end: 20240801
  27. HYDROCORTISONE [Suspect]
     Active Substance: HYDROCORTISONE
     Route: 029
     Dates: start: 20240814, end: 20240814
  28. HYDROCORTISONE [Suspect]
     Active Substance: HYDROCORTISONE
     Route: 029
     Dates: start: 20240909, end: 20240909
  29. HYDROCORTISONE [Suspect]
     Active Substance: HYDROCORTISONE
     Route: 029
     Dates: start: 20241007, end: 20241007

REACTIONS (4)
  - Gait disturbance [Not Recovered/Not Resolved]
  - Radiculopathy [Not Recovered/Not Resolved]
  - Arachnoiditis [Not Recovered/Not Resolved]
  - Paraesthesia [Not Recovered/Not Resolved]

NARRATIVE: CASE EVENT DATE: 20241001
